FAERS Safety Report 7259626-2 (Version None)
Quarter: 2011Q1

REPORT INFORMATION
  Report Type: 
  Country: None (occurrence: None)
  Receive Date: 20110130
  Receipt Date: 20101230
  Transmission Date: 20110831
  Serious: No
  Sender: FDA-Public Use
  Company Number: US-ABBOTT-10P-163-0633459-00

PATIENT
  Sex: Female
  Weight: 95.34 kg

DRUGS (7)
  1. NORVASC [Suspect]
     Indication: HYPERTENSION
  2. LASIX [Concomitant]
     Indication: OEDEMA PERIPHERAL
     Dosage: AS NEEDED
  3. GLUCOPHAGE [Concomitant]
     Indication: DIABETES MELLITUS
     Dates: start: 20050101
  4. METOPROLOL [Concomitant]
     Indication: HYPERTENSION
  5. ESTRACE [Concomitant]
     Indication: PRODUCT USED FOR UNKNOWN INDICATION
  6. HUMIRA [Suspect]
     Indication: RHEUMATOID ARTHRITIS
     Dates: start: 20100201
  7. SALSALATE [Concomitant]
     Indication: RHEUMATOID ARTHRITIS
     Dosage: 750MG-2 PILLS TWICE A DAY

REACTIONS (3)
  - WEIGHT DECREASED [None]
  - INJECTION SITE PAIN [None]
  - WRONG TECHNIQUE IN DRUG USAGE PROCESS [None]
